FAERS Safety Report 22593226 (Version 1)
Quarter: 2023Q2

REPORT INFORMATION
  Report Type: Spontaneous
  Country: US (occurrence: US)
  Receive Date: 20230613
  Receipt Date: 20230613
  Transmission Date: 20230721
  Serious: Yes (Hospitalization, Other)
  Sender: FDA-Public Use
  Company Number: US-MLMSERVICE-20230530-4308460-1

PATIENT
  Sex: Female

DRUGS (3)
  1. PREDNISONE [Suspect]
     Active Substance: PREDNISONE
     Indication: Immunosuppressant drug therapy
     Dosage: UNK
     Route: 065
  2. TACROLIMUS [Suspect]
     Active Substance: TACROLIMUS
     Indication: Immunosuppressant drug therapy
     Dosage: UNK
     Route: 065
  3. MYCOPHENOLATE MOFETIL [Suspect]
     Active Substance: MYCOPHENOLATE MOFETIL
     Indication: Immunosuppressant drug therapy
     Dosage: UNK
     Route: 065

REACTIONS (7)
  - Clostridium difficile colitis [Recovered/Resolved]
  - COVID-19 [Recovered/Resolved]
  - Ear infection bacterial [Recovered/Resolved]
  - Gastroenteritis rotavirus [Recovered/Resolved]
  - Pneumonia bacterial [Recovered/Resolved]
  - Respiratory syncytial virus infection [Recovered/Resolved]
  - Upper respiratory tract infection bacterial [Recovered/Resolved]
